FAERS Safety Report 14245409 (Version 1)
Quarter: 2017Q4

REPORT INFORMATION
  Report Type: Report from Study
  Country: CA (occurrence: CA)
  Receive Date: 20171202
  Receipt Date: 20171202
  Transmission Date: 20180321
  Serious: Yes (Hospitalization)
  Sender: FDA-Public Use
  Company Number: CA-TAKEDA-2017TUS013503

PATIENT
  Age: 64 Year
  Sex: Male

DRUGS (8)
  1. ANTACID                            /00018101/ [Concomitant]
     Active Substance: ALUMINUM HYDROXIDE\DIMETHICONE\MAGNESIUM HYDROXIDE
     Dosage: UNK
  2. OLESTYR [Concomitant]
     Dosage: UNK
  3. VEDOLIZUMAB [Suspect]
     Active Substance: VEDOLIZUMAB
     Indication: CROHN^S DISEASE
     Dosage: 300 MG, UNK
     Route: 042
     Dates: start: 20170314
  4. LUCENTIS [Concomitant]
     Active Substance: RANIBIZUMAB
     Dosage: UNK
  5. IMODIUM [Concomitant]
     Active Substance: LOPERAMIDE HYDROCHLORIDE
     Dosage: UNK
  6. VITAMIN D [Concomitant]
     Active Substance: CHOLECALCIFEROL
     Dosage: UNK
  7. LOSEC [Concomitant]
     Active Substance: OMEPRAZOLE
     Dosage: UNK
  8. MICARDIS [Concomitant]
     Active Substance: TELMISARTAN
     Dosage: UNK

REACTIONS (3)
  - Nausea [Not Recovered/Not Resolved]
  - Vomiting [Not Recovered/Not Resolved]
  - Dehydration [Unknown]

NARRATIVE: CASE EVENT DATE: 2017
